FAERS Safety Report 19553028 (Version 5)
Quarter: 2021Q4

REPORT INFORMATION
  Report Type: Report from Study
  Country: GB (occurrence: GB)
  Receive Date: 20210715
  Receipt Date: 20211004
  Transmission Date: 20220303
  Serious: Yes (Life-Threatening, Hospitalization)
  Sender: FDA-Public Use
  Company Number: GB-JNJFOC-20210667263

PATIENT
  Age: 12 Year
  Sex: Male
  Weight: 35.7 kg

DRUGS (13)
  1. DARATUMUMAB [Suspect]
     Active Substance: DARATUMUMAB
     Indication: Product used for unknown indication
     Dosage: DOSE ONE WAS GIVEN ON 17-JUN-2021; D1, 8, 15, 22 CYCLE; MOST RECENT DOSE RECEIVED ON 08-JUL-2021
     Route: 042
     Dates: start: 20210617
  2. PREDNISONE [Suspect]
     Active Substance: PREDNISONE
     Indication: Product used for unknown indication
     Dosage: FREQUENCY: ^BD^; MOST RECENT DOSE RECEIVED 13-JUL-2021
     Route: 065
     Dates: start: 20210629
  3. DOXORUBICIN [Suspect]
     Active Substance: DOXORUBICIN
     Indication: Product used for unknown indication
     Dosage: MOST RECENT DOSE RECEIVED ON 17-JUN-2021
     Route: 065
     Dates: start: 202106
  4. PEG/L-ASPARAGINASE [Suspect]
     Active Substance: PEGASPARGASE
     Indication: Product used for unknown indication
     Dosage: FREQUENCY D2; MOST RECENT DOSE RECEIVED 05-JUL-2021
     Dates: start: 20210618
  5. METHOTREXATE [Concomitant]
     Active Substance: METHOTREXATE
     Indication: Product used for unknown indication
     Dosage: MOST RECENT DOSE RECEIVED ON 07-JUL-2021
     Route: 065
     Dates: start: 20210623
  6. HYDROCORTISONE [Concomitant]
     Active Substance: HYDROCORTISONE
     Indication: Product used for unknown indication
     Route: 065
     Dates: start: 20210623
  7. CYTARABINE [Concomitant]
     Active Substance: CYTARABINE
     Indication: Product used for unknown indication
     Dosage: MOST RECENT DOSE RECEIVED ON 07-JUL-2021
     Dates: start: 20210623
  8. VINCRISTINE [Concomitant]
     Active Substance: VINCRISTINE
     Indication: Product used for unknown indication
     Dosage: FREQUENCY: D1, D9, D16, D23; MOST RECENT DOSE RECEIVED ON 10-JUL-2021
     Dates: start: 20210623
  9. PIPERACILLIN SODIUM\TAZOBACTAM SODIUM [Concomitant]
     Active Substance: PIPERACILLIN SODIUM\TAZOBACTAM SODIUM
  10. AMIKACIN [Concomitant]
     Active Substance: AMIKACIN
  11. TEICOPLANIN [Concomitant]
     Active Substance: TEICOPLANIN
  12. MEROPENEN [Concomitant]
  13. PLATELETS [Concomitant]
     Active Substance: HUMAN PLATELET, ALLOGENIC

REACTIONS (3)
  - Hypotension [Recovered/Resolved]
  - Blood lactic acid increased [Recovered/Resolved]
  - Sepsis [Recovered/Resolved]

NARRATIVE: CASE EVENT DATE: 20210628
